FAERS Safety Report 25262217 (Version 2)
Quarter: 2025Q2

REPORT INFORMATION
  Report Type: Spontaneous
  Country: MX (occurrence: MX)
  Receive Date: 20250502
  Receipt Date: 20250611
  Transmission Date: 20250716
  Serious: No
  Sender: BECTON DICKINSON
  Company Number: MX-BECTON DICKINSON-MX-BD-25-000207

PATIENT

DRUGS (1)
  1. BD E-Z SCRUB (CHLORHEXIDINE GLUCONATE) [Suspect]
     Active Substance: CHLORHEXIDINE GLUCONATE
     Indication: Product used for unknown indication
     Route: 065

REACTIONS (1)
  - Product lot number issue [Unknown]

NARRATIVE: CASE EVENT DATE: 20250220
